FAERS Safety Report 5014965-0 (Version None)
Quarter: 2006Q2

REPORT INFORMATION
  Report Type: 
  Country: None (occurrence: None)
  Receive Date: 20060412
  Receipt Date: 20051114
  Transmission Date: 20061013
  Serious: Yes (Other)
  Sender: FDA-Public Use
  Company Number: PHEH2005US00918

PATIENT
  Sex: Female

DRUGS (2)
  1. FORADIL [Suspect]
     Dosage: INHALATION
     Route: 055
     Dates: start: 20040101, end: 20041201
  2. FORADIL [Suspect]

REACTIONS (7)
  - BLOOD PRESSURE INCREASED [None]
  - DIFFICULTY IN WALKING [None]
  - INSOMNIA [None]
  - LIMB DISCOMFORT [None]
  - MUSCULOSKELETAL STIFFNESS [None]
  - PAIN IN EXTREMITY [None]
  - PARAESTHESIA [None]
